FAERS Safety Report 10247361 (Version 1)
Quarter: 2014Q1

REPORT INFORMATION
  Report Type: Spontaneous
  Country: US (occurrence: None)
  Receive Date: 20140306
  Receipt Date: 20140306
  Transmission Date: 20141002
  Serious: Yes (Other)
  Sender: FDA-Public Use
  Company Number: 163-21880-13032467

PATIENT
  Age: 71 Year
  Sex: Female

DRUGS (2)
  1. REVLIMID (LENALIDOMIDE) (10 MILLIGRAM, CAPSULES) [Suspect]
     Indication: REFRACTORY ANAEMIA WITH RINGED SIDEROBLASTS
     Route: 048
     Dates: start: 20130120, end: 20130301
  2. REVLIMID (LENALIDOMIDE) (10 MILLIGRAM, CAPSULES) [Suspect]
     Indication: MYELODYSPLASTIC SYNDROME
     Route: 048
     Dates: start: 20130120, end: 20130301

REACTIONS (2)
  - Neutrophil count decreased [None]
  - White blood cell count decreased [None]
